FAERS Safety Report 11301599 (Version 1)
Quarter: 2015Q3

REPORT INFORMATION
  Report Type: Spontaneous
  Country: US (occurrence: US)
  Receive Date: 20150722
  Receipt Date: 20150722
  Transmission Date: 20151125
  Serious: No
  Sender: FDA-Public Use
  Company Number: US-ELI_LILLY_AND_COMPANY-US200908002887

PATIENT
  Sex: Female

DRUGS (2)
  1. HUMATROPE [Suspect]
     Active Substance: SOMATROPIN
     Dosage: UNK, UNKNOWN
     Dates: start: 20090810
  2. BYETTA [Concomitant]
     Active Substance: EXENATIDE
     Dosage: UNK, 2/D
     Dates: start: 20090810

REACTIONS (7)
  - Headache [Recovered/Resolved]
  - Formication [Recovered/Resolved]
  - Nervousness [Recovered/Resolved]
  - Psychomotor hyperactivity [Recovered/Resolved]
  - Nausea [Recovered/Resolved]
  - Feeling jittery [Recovered/Resolved]
  - Muscle spasms [Not Recovered/Not Resolved]

NARRATIVE: CASE EVENT DATE: 20090810
